FAERS Safety Report 9816457 (Version 2)
Quarter: 2014Q1

REPORT INFORMATION
  Report Type: Spontaneous
  Country: GB (occurrence: GB)
  Receive Date: 20140114
  Receipt Date: 20140114
  Transmission Date: 20141002
  Serious: Yes (Other)
  Sender: FDA-Public Use
  Company Number: GB-VERTEX PHARMACEUTICALS INC-2013-011152

PATIENT
  Age: 52 Year
  Sex: Male
  Weight: 96.3 kg

DRUGS (4)
  1. INCIVO [Suspect]
     Indication: HEPATITIS C
     Dosage: 1125 MG, BID
     Route: 048
     Dates: start: 20130724, end: 20130830
  2. COPEGUS [Suspect]
     Indication: HEPATITIS C
     Dosage: 600 MG, QD
     Route: 065
     Dates: start: 20130724, end: 20130830
  3. PEGASYS [Suspect]
     Indication: HEPATITIS C
     Dosage: 180 ?G, QW
     Route: 065
     Dates: start: 20130724, end: 20130830
  4. ELTROMBOPAG [Concomitant]
     Indication: PLATELET COUNT DECREASED
     Dosage: DOSAGE FORM: UNKNOWN
     Route: 065
     Dates: start: 20130626, end: 20130830

REACTIONS (2)
  - Virologic failure [Unknown]
  - Off label use [Unknown]
